FAERS Safety Report 9849250 (Version 1)
Quarter: 2014Q1

REPORT INFORMATION
  Report Type: Spontaneous
  Country: US (occurrence: None)
  Receive Date: 20140127
  Receipt Date: 20140127
  Transmission Date: 20141002
  Serious: Yes (Hospitalization)
  Sender: FDA-Public Use
  Company Number: None

PATIENT
  Age: 59 Year
  Sex: Female
  Weight: 65.77 kg

DRUGS (1)
  1. ZOLPIDEM [Suspect]
     Indication: INSOMNIA
     Dosage: ONE-THIRD TABLET
     Route: 048

REACTIONS (8)
  - Headache [None]
  - Deja vu [None]
  - Feeling abnormal [None]
  - Convulsion [None]
  - Muscle rigidity [None]
  - Loss of consciousness [None]
  - Tongue biting [None]
  - Confusional state [None]
